FAERS Safety Report 24390611 (Version 1)
Quarter: 2024Q4

REPORT INFORMATION
  Report Type: Spontaneous
  Country: US (occurrence: US)
  Receive Date: 20241003
  Receipt Date: 20241003
  Transmission Date: 20250114
  Serious: Yes (Hospitalization, Other)
  Sender: ALEMBIC
  Company Number: US-ALEMBIC PHARMACUETICALS LIMITED-2024SCAL001384

PATIENT

DRUGS (5)
  1. LITHIUM CARBONATE [Suspect]
     Active Substance: LITHIUM CARBONATE
     Indication: Bipolar disorder
     Dosage: 300 MILLIGRAM, QD
     Route: 065
  2. THEOPHYLLINE ANHYDROUS [Suspect]
     Active Substance: THEOPHYLLINE ANHYDROUS
     Indication: Sinus node dysfunction
     Dosage: 300 MILLIGRAM WAS TRIALED, SHE WAS MONITORED FOR AN ADDITIONAL 24-HRS AND GIVEN A AND SECOND DOSE OF
     Route: 065
  3. INSULIN HUMAN [Concomitant]
     Active Substance: INSULIN HUMAN
     Indication: Type 1 diabetes mellitus
     Dosage: 30 UNITS ADMINISTERED TWICE DAILY
  4. LISINOPRIL [Concomitant]
     Active Substance: LISINOPRIL
     Indication: Hypertension
     Dosage: 2.5 MG, QD
     Route: 065
  5. RISPERIDONE [Concomitant]
     Active Substance: RISPERIDONE
     Indication: Schizophrenia
     Dosage: 3 MG, QD
     Route: 065

REACTIONS (18)
  - Sinus node dysfunction [Recovering/Resolving]
  - Sinoatrial block [Recovering/Resolving]
  - Nodal rhythm [Recovering/Resolving]
  - Nodal arrhythmia [Recovering/Resolving]
  - Sinus bradycardia [Recovering/Resolving]
  - Bradycardia [Recovered/Resolved]
  - Toxicity to various agents [Unknown]
  - Acute kidney injury [Recovering/Resolving]
  - Confusional state [Unknown]
  - Fatigue [Unknown]
  - Asthenia [Unknown]
  - Tremor [Unknown]
  - Antipsychotic drug level increased [Unknown]
  - Leukocytosis [Unknown]
  - Hyperkalaemia [Recovering/Resolving]
  - Hypophagia [Unknown]
  - Blood creatinine increased [Recovering/Resolving]
  - Drug effective for unapproved indication [Unknown]

NARRATIVE: CASE EVENT DATE: 20231101
